FAERS Safety Report 25062143 (Version 1)
Quarter: 2025Q1

REPORT INFORMATION
  Report Type: Spontaneous
  Country: IT (occurrence: IT)
  Receive Date: 20250311
  Receipt Date: 20250311
  Transmission Date: 20250408
  Serious: Yes (Death, Other)
  Sender: HIKMA
  Company Number: None

PATIENT
  Age: 54 Year
  Sex: Female
  Weight: 62 kg

DRUGS (9)
  1. BEVACIZUMAB [Suspect]
     Active Substance: BEVACIZUMAB
     Indication: Product used for unknown indication
     Route: 042
     Dates: start: 20250204
  2. CARBOPLATIN [Suspect]
     Active Substance: CARBOPLATIN
     Indication: Product used for unknown indication
     Route: 042
     Dates: start: 20250204
  3. GEMCITABINE [Suspect]
     Active Substance: GEMCITABINE
     Indication: Product used for unknown indication
     Route: 042
     Dates: start: 20250204
  4. CETIRIZINE [Concomitant]
     Active Substance: CETIRIZINE HYDROCHLORIDE
     Indication: Product used for unknown indication
     Dosage: 10 MILLIGRAM, QD
     Route: 048
     Dates: start: 20250203
  5. DEXAMETHASONE SODIUM PHOSPHATE [Concomitant]
     Active Substance: DEXAMETHASONE SODIUM PHOSPHATE
     Indication: Product used for unknown indication
     Route: 042
     Dates: start: 20250204
  6. LEVOFLOXACIN [Concomitant]
     Active Substance: LEVOFLOXACIN
     Indication: Product used for unknown indication
     Dosage: 500 MILLIGRAM, QD
     Route: 048
     Dates: start: 20250210
  7. MYCOSTATIN [Concomitant]
     Active Substance: NYSTATIN
     Indication: Product used for unknown indication
     Route: 048
     Dates: start: 20250213
  8. PALONOSETRON [Concomitant]
     Active Substance: PALONOSETRON
     Indication: Product used for unknown indication
     Route: 048
     Dates: start: 20250204
  9. FILGRASTIM [Concomitant]
     Active Substance: FILGRASTIM
     Indication: Product used for unknown indication
     Route: 058
     Dates: start: 20250210

REACTIONS (7)
  - Multiple organ dysfunction syndrome [Fatal]
  - Decreased appetite [Not Recovered/Not Resolved]
  - Diarrhoea [Recovering/Resolving]
  - Asthenia [Not Recovered/Not Resolved]
  - Neutropenia [Not Recovered/Not Resolved]
  - Thrombocytopenia [Not Recovered/Not Resolved]
  - Leukopenia [Not Recovered/Not Resolved]

NARRATIVE: CASE EVENT DATE: 20250201
